FAERS Safety Report 5233150-0 (Version None)
Quarter: 2007Q1

REPORT INFORMATION
  Report Type: 
  Country: None (occurrence: None)
  Receive Date: 20061204
  Receipt Date: 20061025
  Transmission Date: 20070707
  Serious: No
  Sender: FDA-Public Use
  Company Number: 2006-BP-12540BP

PATIENT
  Age: 77 Year
  Sex: Male

DRUGS (3)
  1. SPIRIVA [Suspect]
     Indication: CHRONIC OBSTRUCTIVE PULMONARY DISEASE
     Dosage: 18 MG (18 MG) IH
     Route: 055
     Dates: start: 20060201
  2. LOTEMAX [Concomitant]
  3. THERATEARS (CARMELLOSE) [Concomitant]

REACTIONS (2)
  - CATARACT OPERATION [None]
  - DRY EYE [None]
